FAERS Safety Report 15336203 (Version 2)
Quarter: 2018Q3

REPORT INFORMATION
  Report Type: Report from Study
  Country: TH (occurrence: TH)
  Receive Date: 20180830
  Receipt Date: 20180924
  Transmission Date: 20181010
  Serious: Yes (Hospitalization)
  Sender: FDA-Public Use
  Company Number: TH-TEVA-2018-TH-934171

PATIENT
  Age: 58 Year
  Sex: Female

DRUGS (3)
  1. RIBOMUSTIN [Suspect]
     Active Substance: BENDAMUSTINE HYDROCHLORIDE
     Indication: CHRONIC LYMPHOCYTIC LEUKAEMIA
     Dosage: 175 MG, ONCE A DAY CYCLIC
     Route: 042
     Dates: start: 20180308
  2. RIBOMUSTIN [Suspect]
     Active Substance: BENDAMUSTINE HYDROCHLORIDE
     Dosage: (CYCLE 5)
     Route: 042
     Dates: start: 20180627, end: 20180628
  3. RIBOMUSTIN [Suspect]
     Active Substance: BENDAMUSTINE HYDROCHLORIDE
     Dosage: (CYCLE 6)
     Route: 042
     Dates: start: 20180725, end: 20180726

REACTIONS (6)
  - Heart rate increased [Not Recovered/Not Resolved]
  - Feeding disorder [Recovering/Resolving]
  - Vomiting [Recovering/Resolving]
  - Asthenia [Not Recovered/Not Resolved]
  - Central nervous system infection [Not Recovered/Not Resolved]
  - Somnolence [Not Recovered/Not Resolved]

NARRATIVE: CASE EVENT DATE: 2018
